FAERS Safety Report 4592952-4 (Version None)
Quarter: 2005Q1

REPORT INFORMATION
  Report Type: 
  Country: None (occurrence: None)
  Receive Date: 20050125
  Receipt Date: 20041027
  Transmission Date: 20050727
  Serious: No
  Sender: FDA-Public Use
  Company Number: USA040875902

PATIENT
  Age: 62 Year
  Sex: Female
  Weight: 57 kg

DRUGS (4)
  1. FORTEO [Suspect]
     Indication: OSTEOPOROSIS
     Dosage: 20 UG/1 DAY
     Dates: start: 20040808
  2. ZOCOR (SIMVASTATIN RATIOPHARM) [Concomitant]
  3. CALTRATE (CALCIUM CARBONATE) [Concomitant]
  4. VITAMINS [Concomitant]

REACTIONS (3)
  - BLOOD CALCIUM INCREASED [None]
  - INJECTION SITE ERYTHEMA [None]
  - INJECTION SITE SWELLING [None]
